FAERS Safety Report 5083846-9 (Version None)
Quarter: 2006Q3

REPORT INFORMATION
  Report Type: 
  Country: None (occurrence: None)
  Receive Date: 20060818
  Receipt Date: 20060809
  Transmission Date: 20061208
  Serious: Yes (Other)
  Sender: FDA-Public Use
  Company Number: US-AMGEN-US189615

PATIENT
  Age: 47 Year
  Sex: Male

DRUGS (2)
  1. PROCRIT [Suspect]
     Indication: ANAEMIA
     Dates: start: 20060401, end: 20060727
  2. IRON [Concomitant]
     Route: 042
     Dates: start: 20060701

REACTIONS (4)
  - BLOOD PRODUCT TRANSFUSION DEPENDENT [None]
  - LIFE SUPPORT [None]
  - OEDEMA [None]
  - SPUTUM PURULENT [None]
